FAERS Safety Report 12094347 (Version 1)
Quarter: 2016Q1

REPORT INFORMATION
  Report Type: Report from Study
  Country: CA (occurrence: CA)
  Receive Date: 20160219
  Receipt Date: 20160219
  Transmission Date: 20160526
  Serious: Yes (Other)
  Sender: FDA-Public Use
  Company Number: CA-JNJFOC-20160214549

PATIENT
  Age: 42 Year
  Sex: Male
  Weight: 69.5 kg

DRUGS (1)
  1. SIMPONI [Suspect]
     Active Substance: GOLIMUMAB
     Indication: ANKYLOSING SPONDYLITIS
     Route: 042
     Dates: start: 201502

REACTIONS (2)
  - Rectal haemorrhage [Recovered/Resolved]
  - Viral pharyngitis [Unknown]

NARRATIVE: CASE EVENT DATE: 201602
